FAERS Safety Report 5885170-0 (Version None)
Quarter: 2008Q3

REPORT INFORMATION
  Report Type: 
  Country: None (occurrence: None)
  Receive Date: 20080915
  Receipt Date: 20080915
  Transmission Date: 20090109
  Serious: Yes (Other)
  Sender: FDA-Public Use
  Company Number: None

PATIENT
  Age: 17 Year
  Sex: Male
  Weight: 108.8633 kg

DRUGS (2)
  1. CVS NIGHTTIME COLD/FLU RELIEF CVS PHARMACY [Suspect]
     Indication: INFLUENZA
     Dosage: 2 TABLESPOONS 6 HRS PO
     Route: 048
     Dates: start: 20080909, end: 20080911
  2. CVS NIGHTTIME COLD/FLU RELIEF CVS PHARMACY [Suspect]
     Indication: NASOPHARYNGITIS
     Dosage: 2 TABLESPOONS 6 HRS PO
     Route: 048
     Dates: start: 20080909, end: 20080911

REACTIONS (7)
  - ABDOMINAL PAIN UPPER [None]
  - ANXIETY [None]
  - EPISTAXIS [None]
  - FAECES DISCOLOURED [None]
  - MUSCLE FATIGUE [None]
  - PANIC ATTACK [None]
  - TREMOR [None]
